FAERS Safety Report 14141147 (Version 1)
Quarter: 2017Q4

REPORT INFORMATION
  Report Type: Spontaneous
  Country: US (occurrence: US)
  Receive Date: 20171030
  Receipt Date: 20171030
  Transmission Date: 20180321
  Serious: Yes (Other)
  Sender: FDA-Public Use
  Company Number: US-PFIZER INC-2017465595

PATIENT
  Age: 63 Year
  Sex: Male

DRUGS (1)
  1. ADVIL [Suspect]
     Active Substance: IBUPROFEN
     Dosage: ^TAKING AT HIGH DOSES^

REACTIONS (2)
  - Intentional product misuse [Recovered/Resolved]
  - Colitis ulcerative [Recovered/Resolved]
